FAERS Safety Report 24828805 (Version 8)
Quarter: 2025Q1

REPORT INFORMATION
  Report Type: Spontaneous
  Country: US (occurrence: US)
  Receive Date: 20250110
  Receipt Date: 20250329
  Transmission Date: 20250409
  Serious: Yes (Other)
  Sender: ROCHE
  Company Number: US-ROCHE-10000172187

PATIENT
  Age: 65 Year
  Sex: Male
  Weight: 114.31 kg

DRUGS (11)
  1. XOLAIR [Suspect]
     Active Substance: OMALIZUMAB
     Indication: Asthma
     Dosage: STRENGTH: 300MG/2M
     Route: 058
     Dates: start: 2020
  2. XOLAIR [Suspect]
     Active Substance: OMALIZUMAB
     Dosage: STRENGTH: 300MG/2M, ONGOING
     Route: 058
     Dates: start: 202208
  3. XOLAIR [Suspect]
     Active Substance: OMALIZUMAB
     Dosage: STRENGTH: 300MG/2M
     Route: 058
     Dates: start: 202208
  4. XOLAIR [Suspect]
     Active Substance: OMALIZUMAB
     Dosage: ONGOING
     Route: 058
     Dates: start: 20220509
  5. ASPIRIN [Concomitant]
     Active Substance: ASPIRIN
     Indication: Prosthesis user
     Route: 048
     Dates: start: 2019
  6. VALSARTAN [Concomitant]
     Active Substance: VALSARTAN
     Indication: Hypertension
     Dosage: 1/2 OF 40MG PILL
     Route: 048
     Dates: start: 2019
  7. METOPROLOL SUCCINATE [Concomitant]
     Active Substance: METOPROLOL SUCCINATE
     Indication: Hypertension
     Route: 048
     Dates: start: 2019
  8. FAMOTIDINE [Concomitant]
     Active Substance: FAMOTIDINE
     Indication: Gastrooesophageal reflux disease
     Dosage: STOMACH ACID
     Route: 048
     Dates: start: 20230924
  9. FENOFIBRATE [Concomitant]
     Active Substance: FENOFIBRATE
     Indication: Blood cholesterol
     Route: 048
     Dates: start: 20201006
  10. CENTRUM MINIS MEN 50+ [Concomitant]
     Dosage: MULTI VITAMIN
     Route: 048
  11. REPATHA [Concomitant]
     Active Substance: EVOLOCUMAB
     Indication: Blood cholesterol
     Dates: start: 2020, end: 202406

REACTIONS (12)
  - Paralysis [Unknown]
  - Off label use [Unknown]
  - Pain [Not Recovered/Not Resolved]
  - Poor quality product administered [Unknown]
  - Product quality issue [Unknown]
  - Nervous system disorder [Unknown]
  - Product packaging issue [Unknown]
  - Product dose omission issue [Unknown]
  - Dyspnoea [Unknown]
  - Product complaint [Unknown]
  - Respiratory disorder [Not Recovered/Not Resolved]
  - Drug ineffective [Unknown]

NARRATIVE: CASE EVENT DATE: 20200101
